FAERS Safety Report 8214471-6 (Version None)
Quarter: 2012Q1

REPORT INFORMATION
  Report Type: 
  Country: None (occurrence: None)
  Receive Date: 20120316
  Receipt Date: 20120306
  Transmission Date: 20120608
  Serious: Yes (Hospitalization)
  Sender: FDA-Public Use
  Company Number: JP-JNJFOC-20111201051

PATIENT
  Sex: Male
  Weight: 49 kg

DRUGS (32)
  1. REMICADE [Suspect]
     Dosage: NINTH DOSE
     Route: 042
     Dates: start: 20111008
  2. REMICADE [Suspect]
     Route: 042
     Dates: start: 20100917
  3. METHOTREXATE [Concomitant]
     Route: 048
  4. RHYTHMY [Concomitant]
     Indication: INSOMNIA
     Route: 048
  5. CODEINE PHOSPHATE [Concomitant]
     Indication: PANCREATITIS CHRONIC
     Route: 048
  6. KAYEXALATE [Concomitant]
     Indication: HYPERKALAEMIA
     Route: 048
  7. FOIPAN [Concomitant]
     Indication: PANCREATITIS CHRONIC
     Route: 048
  8. COSPANON [Concomitant]
     Indication: PANCREATITIS CHRONIC
     Route: 048
  9. LEVOTHYROXINE SODIUM [Concomitant]
     Indication: HYPOTHYROIDISM
     Route: 048
  10. REMICADE [Suspect]
     Route: 042
     Dates: start: 20110805
  11. BERIZYM [Concomitant]
     Indication: PANCREATITIS CHRONIC
     Route: 048
  12. REMICADE [Suspect]
     Route: 042
     Dates: start: 20101206
  13. ALLEGRA [Concomitant]
     Indication: PSORIATIC ARTHROPATHY
     Route: 048
  14. MAGMITT [Concomitant]
     Indication: CONSTIPATION
     Route: 048
  15. ADALAT [Concomitant]
     Indication: HYPERTENSION
     Route: 048
  16. NOVORAPID [Concomitant]
     Indication: DIABETES MELLITUS
     Dosage: 10-10-8 UNITS
     Route: 058
  17. REMICADE [Suspect]
     Indication: PSORIATIC ARTHROPATHY
     Dosage: 10TH DOSE
     Route: 042
     Dates: start: 20120125
  18. REMICADE [Suspect]
     Dosage: FIRST DOSE
     Route: 042
     Dates: start: 20100705
  19. FAMOTIDINE [Concomitant]
     Indication: GASTRITIS
     Route: 048
  20. ROHYPNOL [Concomitant]
     Indication: INSOMNIA
     Route: 048
  21. ADEROXAL [Concomitant]
     Indication: PSORIATIC ARTHROPATHY
     Route: 048
  22. TORSEMIDE [Concomitant]
     Indication: HYPERTENSION
     Route: 048
  23. SENNARIDE [Concomitant]
     Indication: CONSTIPATION
     Route: 048
  24. MIYA-BM [Concomitant]
     Indication: CONSTIPATION
     Route: 048
  25. REMICADE [Suspect]
     Route: 042
     Dates: start: 20110412
  26. REMICADE [Suspect]
     Route: 042
     Dates: start: 20110214
  27. REMICADE [Suspect]
     Route: 042
     Dates: start: 20100816
  28. CARVEDILOL [Concomitant]
     Indication: HYPERTENSION
     Route: 048
  29. REMICADE [Suspect]
     Route: 042
     Dates: start: 20110607
  30. DEPAS [Concomitant]
     Indication: INSOMNIA
     Route: 048
  31. ATARAX [Concomitant]
     Indication: PSYCHOSOMATIC DISEASE
     Route: 048
  32. PREDNISOLONE [Concomitant]
     Indication: PSORIATIC ARTHROPATHY
     Route: 048

REACTIONS (3)
  - PANCREATITIS CHRONIC [None]
  - MUSCLE ABSCESS [None]
  - PYREXIA [None]
